FAERS Safety Report 4526575-X (Version None)
Quarter: 2004Q4

REPORT INFORMATION
  Report Type: 
  Country: None (occurrence: None)
  Receive Date: 20041214
  Receipt Date: 20041203
  Transmission Date: 20050328
  Serious: Yes (Hospitalization)
  Sender: FDA-Public Use
  Company Number: JP-JNJFOC-20041200673

PATIENT
  Age: 30 Year
  Sex: Female

DRUGS (7)
  1. OFLOXACIN [Suspect]
     Indication: PELVIC INFLAMMATORY DISEASE
     Route: 049
     Dates: start: 20030721
  2. AUGMENTIN '125' [Concomitant]
     Dates: start: 20030524, end: 20030531
  3. AUGMENTIN '125' [Concomitant]
     Indication: PELVIC INFLAMMATORY DISEASE
     Dates: start: 20030524, end: 20030531
  4. MERCILON [Concomitant]
     Route: 049
  5. MERCILON [Concomitant]
     Indication: CONTRACEPTION
     Route: 049
  6. CO-CODAMOL [Concomitant]
     Dates: start: 20030402
  7. CO-CODAMOL [Concomitant]
     Indication: ABDOMINAL PAIN
     Dates: start: 20030402

REACTIONS (2)
  - MUSCLE TWITCHING [None]
  - NECK PAIN [None]
